FAERS Safety Report 18229521 (Version 1)
Quarter: 2020Q3

REPORT INFORMATION
  Report Type: Spontaneous
  Country: FR (occurrence: FR)
  Receive Date: 20200903
  Receipt Date: 20200903
  Transmission Date: 20201103
  Serious: Yes (Life-Threatening)
  Sender: FDA-Public Use
  Company Number: FR-ALLERGAN-2033355US

PATIENT
  Sex: Female
  Weight: 60 kg

DRUGS (2)
  1. ESCITALOPRAM OXALATE ? BP [Suspect]
     Active Substance: ESCITALOPRAM OXALATE
     Indication: DEPRESSION
     Dosage: 20 MG, QD
     Route: 048
     Dates: start: 202005, end: 20200805
  2. THERALENE [Interacting]
     Active Substance: TRIMEPRAZINE
     Indication: DEPRESSION
     Route: 048
     Dates: start: 202005, end: 20200729

REACTIONS (4)
  - Drug interaction [Unknown]
  - Cardiac arrest [Recovered/Resolved]
  - Electrocardiogram QT prolonged [Recovered/Resolved]
  - Ventricular fibrillation [Recovered/Resolved]

NARRATIVE: CASE EVENT DATE: 20200729
